FAERS Safety Report 4375063-2 (Version None)
Quarter: 2004Q2

REPORT INFORMATION
  Report Type: 
  Country: None (occurrence: None)
  Receive Date: 20040607
  Receipt Date: 20030612
  Transmission Date: 20050107
  Serious: Yes (Other)
  Sender: FDA-Public Use
  Company Number: 339971

PATIENT
  Sex: 0

DRUGS (1)
  1. ISOTRETINOIN [Suspect]
     Dosage: DOSE FORM ORAL
     Route: 048
     Dates: start: 20030515, end: 20030515

REACTIONS (2)
  - ABORTION INDUCED [None]
  - ADVERSE EVENT [None]
